FAERS Safety Report 17482648 (Version 1)
Quarter: 2020Q1

REPORT INFORMATION
  Report Type: Spontaneous
  Country: US (occurrence: US)
  Receive Date: 20200218
  Receipt Date: 20200218
  Transmission Date: 20200409
  Serious: No
  Sender: FDA-Public Use
  Company Number: None

PATIENT
  Age: 13 Year
  Sex: Male
  Weight: 53.52 kg

DRUGS (1)
  1. OSELTAMIVIR PHOS 75MG CAPSULE [Suspect]
     Active Substance: OSELTAMIVIR PHOSPHATE
     Indication: INFLUENZA
     Dosage: ?          QUANTITY:10 PILLS;?
     Route: 048
     Dates: start: 20200127, end: 20200129

REACTIONS (4)
  - Body temperature decreased [None]
  - Hallucination [None]
  - Abnormal behaviour [None]
  - Anxiety [None]

NARRATIVE: CASE EVENT DATE: 20200127
